FAERS Safety Report 8763117 (Version 2)
Quarter: 2013Q1

REPORT INFORMATION
  Report Type: Report from Study
  Country: JP (occurrence: JP)
  Receive Date: 20120831
  Receipt Date: 20130202
  Transmission Date: 20140127
  Serious: No
  Sender: FDA-Public Use
  Company Number: JP-009507513-1208JPN010266

PATIENT
  Age: 47 Year
  Sex: Male
  Weight: 66 kg

DRUGS (23)
  1. PEGINTRON [Suspect]
     Indication: CHRONIC HEPATITIS C
     Dosage: 1.5 MICROGRAM PER KILOGRAM, UNK
     Route: 058
     Dates: start: 20120316, end: 20120413
  2. PEGINTRON [Suspect]
     Dosage: 1.2 MICROGRAM PER KILOGRAM, QW
     Route: 058
     Dates: start: 20120420, end: 20120720
  3. PEGINTRON [Suspect]
     Dosage: 1.5 MICROGRAM PER KILOGRAM, QW
     Route: 058
     Dates: start: 20120727
  4. REBETOL [Suspect]
     Indication: CHRONIC HEPATITIS C
     Dosage: 800 MG, QD
     Route: 048
     Dates: start: 20120316, end: 20120420
  5. REBETOL [Suspect]
     Dosage: 400 MG, QD
     Route: 048
     Dates: start: 20120420, end: 20120518
  6. REBETOL [Suspect]
     Dosage: 200 MG, QD
     Route: 048
     Dates: start: 20120518, end: 20120706
  7. REBETOL [Suspect]
     Dosage: 400 MG, QD
     Route: 048
     Dates: start: 20120706, end: 20120713
  8. REBETOL [Suspect]
     Dosage: 600 MG, QD
     Route: 048
     Dates: start: 20120713, end: 20120720
  9. REBETOL [Suspect]
     Dosage: 800 MG, QD
     Route: 048
     Dates: start: 20120720
  10. TELAVIC [Suspect]
     Indication: CHRONIC HEPATITIS C
     Dosage: 2250 MG, QD
     Route: 048
     Dates: start: 20120316, end: 20120608
  11. URSO [Concomitant]
     Indication: CHRONIC HEPATITIS C
     Dosage: 900 MG, QD
     Route: 048
     Dates: end: 20120420
  12. SELBEX [Concomitant]
     Indication: GASTRITIS
     Dosage: 150 MG, QD
     Route: 048
  13. MIYA-BM [Concomitant]
     Indication: DYSCHEZIA
     Dosage: 3 G, QD
     Route: 048
  14. LAC-B [Concomitant]
     Indication: DYSCHEZIA
     Dosage: 3 G, QD
     Route: 048
  15. ROHYPNOL [Concomitant]
     Indication: INSOMNIA
     Dosage: 2 MG, QD
     Route: 048
  16. ROHYPNOL [Concomitant]
     Dosage: 2 MG/DAY, PRN
     Route: 048
  17. NEXIUM [Concomitant]
     Indication: GASTROOESOPHAGEAL REFLUX DISEASE
     Dosage: 10 MG, QD
     Route: 048
     Dates: start: 20120319
  18. GASMOTIN [Concomitant]
     Indication: GASTRITIS
     Dosage: 15 MG, QD
     Route: 048
     Dates: start: 20120319, end: 20120608
  19. ANTEBATE [Concomitant]
     Dosage: Q.S./DAY
     Route: 051
     Dates: start: 20120327
  20. HEPARINOID [Concomitant]
     Dosage: Q.S./DAY
     Route: 051
     Dates: start: 20120327
  21. ZYLORIC [Concomitant]
     Dosage: 200 MG, QD
     Route: 048
     Dates: start: 20120406
  22. HEPARINOID [Concomitant]
     Dosage: DAILY DOSE UNKNOWN
     Route: 061
     Dates: end: 20120608
  23. LORFENAMIN [Concomitant]

REACTIONS (1)
  - Hyperuricaemia [Recovering/Resolving]
